FAERS Safety Report 8560950-1 (Version None)
Quarter: 2012Q3

REPORT INFORMATION
  Report Type: 
  Country: None (occurrence: None)
  Receive Date: 20120802
  Receipt Date: 20120726
  Transmission Date: 20120928
  Serious: Yes (Hospitalization)
  Sender: FDA-Public Use
  Company Number: DE-ELI_LILLY_AND_COMPANY-DE201207008289

PATIENT
  Sex: Female

DRUGS (4)
  1. DIURETICS [Concomitant]
  2. FORTEO [Suspect]
     Indication: OSTEOPOROSIS
     Dosage: UNK, QD
     Route: 058
     Dates: start: 20110721
  3. LOSARTAN POTASSIUM AND HYDROCHLOROTHIAZIDE [Concomitant]
  4. SYMBICORT [Concomitant]

REACTIONS (7)
  - PULMONARY EMBOLISM [None]
  - BREAST CYST [None]
  - PANCREATIC CYST [None]
  - RENAL CYST [None]
  - INTESTINAL CYST [None]
  - CHEST PAIN [None]
  - COUGH [None]
